FAERS Safety Report 8179708-0 (Version None)
Quarter: 2012Q1

REPORT INFORMATION
  Report Type: 
  Country: None (occurrence: None)
  Receive Date: 20120302
  Receipt Date: 20120221
  Transmission Date: 20120608
  Serious: Yes (Hospitalization)
  Sender: FDA-Public Use
  Company Number: US-ELI_LILLY_AND_COMPANY-US201104002026

PATIENT
  Sex: Female

DRUGS (1)
  1. FORTEO [Suspect]
     Dosage: 20 UG, QD
     Route: 058
     Dates: start: 20101026

REACTIONS (5)
  - PATELLA REPLACEMENT [None]
  - RASH [None]
  - TOOTH DISORDER [None]
  - HIP ARTHROPLASTY [None]
  - PRURITUS [None]
